FAERS Safety Report 8488486-7 (Version None)
Quarter: 2012Q3

REPORT INFORMATION
  Report Type: 
  Country: None (occurrence: None)
  Receive Date: 20120705
  Receipt Date: 20120703
  Transmission Date: 20120928
  Serious: Yes (Hospitalization, Other)
  Sender: FDA-Public Use
  Company Number: US-PFIZER INC-2012159993

PATIENT
  Age: 58 Year
  Sex: Female
  Weight: 63.49 kg

DRUGS (2)
  1. LIPITOR [Suspect]
     Indication: BLOOD CHOLESTEROL INCREASED
     Dosage: UNK
     Dates: end: 20120101
  2. NEURONTIN [Suspect]
     Indication: NEUROPATHY PERIPHERAL
     Dosage: 300 MG, 4X/DAY
     Dates: end: 20120101

REACTIONS (4)
  - CARDIAC DISORDER [None]
  - LIMB OPERATION [None]
  - DYSPNOEA [None]
  - CARDIAC FAILURE CONGESTIVE [None]
